FAERS Safety Report 23188627 (Version 2)
Quarter: 2023Q4

REPORT INFORMATION
  Report Type: Spontaneous
  Country: US (occurrence: US)
  Receive Date: 20231115
  Receipt Date: 20231222
  Transmission Date: 20240110
  Serious: No
  Sender: FDA-Public Use
  Company Number: US-PFIZER INC-202300359673

PATIENT
  Age: 72 Year
  Sex: Female
  Weight: 73.016 kg

DRUGS (1)
  1. XELJANZ [Suspect]
     Active Substance: TOFACITINIB CITRATE
     Dosage: 5 MG, 2X/DAY

REACTIONS (6)
  - Hypersensitivity [Unknown]
  - Rhinorrhoea [Unknown]
  - Intentional product misuse [Unknown]
  - Vomiting [Unknown]
  - Drug ineffective [Unknown]
  - Abdominal discomfort [Unknown]
